FAERS Safety Report 14887637 (Version 4)
Quarter: 2022Q2

REPORT INFORMATION
  Report Type: Report from Study
  Country: GB (occurrence: GB)
  Receive Date: 20180513
  Receipt Date: 20220418
  Transmission Date: 20220721
  Serious: Yes (Death, Hospitalization, Disabling, Other)
  Sender: FDA-Public Use
  Company Number: GB-ROCHE-1710882

PATIENT
  Age: 47 Year
  Sex: Female

DRUGS (33)
  1. TRASTUZUMAB [Suspect]
     Active Substance: TRASTUZUMAB
     Indication: HER2 positive breast cancer
     Dosage: 525 MG (LOADING DOSE)
     Route: 042
     Dates: start: 20151023, end: 20151023
  2. TRASTUZUMAB [Suspect]
     Active Substance: TRASTUZUMAB
     Indication: Breast cancer metastatic
     Dosage: 400 MG, Q3W (MAINTENANCE DOSE)
     Route: 042
     Dates: start: 20151120, end: 20161104
  3. LETROZOLE [Suspect]
     Active Substance: LETROZOLE
     Indication: HER2 positive breast cancer
     Dosage: 2.5 MG, QD
     Route: 048
     Dates: start: 20160308, end: 20161123
  4. LETROZOLE [Suspect]
     Active Substance: LETROZOLE
     Indication: Breast cancer metastatic
  5. IRINOTECAN [Suspect]
     Active Substance: IRINOTECAN
     Indication: Breast cancer metastatic
     Dosage: 132 MG (LOADING DOSE)
     Route: 042
     Dates: start: 20151022, end: 20151022
  6. IRINOTECAN [Suspect]
     Active Substance: IRINOTECAN
     Indication: HER2 positive breast cancer
     Dosage: 108 MG, Q3W
     Route: 042
     Dates: start: 20151120, end: 20160222
  7. ADO-TRASTUZUMAB EMTANSINE [Suspect]
     Active Substance: ADO-TRASTUZUMAB EMTANSINE
     Indication: Breast cancer metastatic
     Dosage: 240 MG, TIW
     Route: 042
     Dates: start: 20161201, end: 20170302
  8. ADO-TRASTUZUMAB EMTANSINE [Suspect]
     Active Substance: ADO-TRASTUZUMAB EMTANSINE
     Indication: HER2 positive breast cancer
     Dosage: 200 MG, TIW
     Route: 042
     Dates: start: 20170330, end: 20170608
  9. DOCETAXEL [Suspect]
     Active Substance: DOCETAXEL
     Indication: Breast cancer metastatic
     Dosage: 132 MG
     Route: 042
     Dates: start: 20151022, end: 20151022
  10. DOCETAXEL [Suspect]
     Active Substance: DOCETAXEL
     Dosage: 108 MG, Q3W (MAINTENANCE DOSE )
     Dates: start: 20151120, end: 20160222
  11. PERTUZUMAB [Suspect]
     Active Substance: PERTUZUMAB
     Indication: HER2 positive breast cancer
     Dosage: 840 MG (LOADING DOSE)
     Route: 042
     Dates: start: 20151023, end: 20151023
  12. PERTUZUMAB [Suspect]
     Active Substance: PERTUZUMAB
     Indication: Breast cancer metastatic
     Dosage: 420 MG, Q3W (MAINTENANCE DOSE)
     Route: 042
     Dates: start: 20151120, end: 20161104
  13. HYDROCORTISONE [Concomitant]
     Active Substance: HYDROCORTISONE
     Indication: Prophylaxis
     Dosage: 300 MG, QW
     Route: 042
     Dates: start: 20151022, end: 20160222
  14. HYDROCORTISONE [Concomitant]
     Active Substance: HYDROCORTISONE
     Dosage: 100 MG, Q3W
     Route: 042
     Dates: start: 20151022, end: 20160222
  15. DEXAMETHASONE [Concomitant]
     Active Substance: DEXAMETHASONE
     Indication: Prophylaxis
     Dosage: 8 MG, BID (TWICE A DAY FOR 3 DAYS STARTING DAY BEFORE CHEMO)
     Route: 048
     Dates: start: 20151210, end: 20160222
  16. DEXAMETHASONE [Concomitant]
     Active Substance: DEXAMETHASONE
     Indication: Neoplasm progression
     Dosage: 4 MG, BID
     Route: 048
     Dates: start: 20170809, end: 20170919
  17. DEXAMETHASONE [Concomitant]
     Active Substance: DEXAMETHASONE
     Indication: Metastases to central nervous system
     Dosage: 8 MG, BID
     Route: 048
     Dates: start: 20170803, end: 20170809
  18. DEXAMETHASONE [Concomitant]
     Active Substance: DEXAMETHASONE
     Dosage: 2 MG, QD
     Route: 048
     Dates: start: 20170726, end: 20170803
  19. DEXAMETHASONE [Concomitant]
     Active Substance: DEXAMETHASONE
     Dosage: 16 MG
     Route: 048
     Dates: start: 20170803, end: 20170809
  20. DEXAMETHASONE [Concomitant]
     Active Substance: DEXAMETHASONE
     Dosage: 8 MG, BID (TWICE A DAY FOR 3 DAYS STARTING DAY BEFORE CHEMO)(0.5 DAY)
     Route: 048
     Dates: start: 20170803, end: 20170809
  21. DEXAMETHASONE [Concomitant]
     Active Substance: DEXAMETHASONE
     Dosage: 8 MG
     Route: 048
     Dates: start: 20170809, end: 20170919
  22. ZOLEDRONIC ACID [Concomitant]
     Active Substance: ZOLEDRONIC ACID
     Indication: Product used for unknown indication
     Dosage: 4 MG, QM
     Route: 042
     Dates: start: 20151022, end: 20170713
  23. FILGRASTIM [Concomitant]
     Active Substance: FILGRASTIM
     Indication: Prophylaxis
     Dosage: 300 UG, QD
     Route: 058
     Dates: start: 20151120, end: 20151127
  24. FILGRASTIM [Concomitant]
     Active Substance: FILGRASTIM
     Dosage: 300 UG
     Route: 058
     Dates: start: 20151210, end: 20160305
  25. FILGRASTIM [Concomitant]
     Active Substance: FILGRASTIM
     Dosage: UNK
  26. CHLORPHENIRAMINE MALEATE [Concomitant]
     Active Substance: CHLORPHENIRAMINE MALEATE
     Indication: Prophylaxis
     Dosage: 30 MG, QW
     Route: 042
     Dates: start: 20151022, end: 20160222
  27. CHLORPHENIRAMINE MALEATE [Concomitant]
     Active Substance: CHLORPHENIRAMINE MALEATE
     Dosage: 10 MG, Q3W
     Route: 042
     Dates: start: 20151022, end: 20160222
  28. GLYCOPYRRONIUM [Concomitant]
     Active Substance: GLYCOPYRRONIUM
     Indication: Palliative care
     Dosage: 40 UG, PRN
     Route: 058
     Dates: start: 20170919, end: 20200920
  29. HALOPERIDOL [Concomitant]
     Active Substance: HALOPERIDOL
     Indication: Palliative care
     Dosage: 1.5 MG, BID
     Route: 048
     Dates: start: 20170810, end: 20170919
  30. HALOPERIDOL [Concomitant]
     Active Substance: HALOPERIDOL
     Dosage: 1.5 MG, PRN
     Route: 058
     Dates: start: 20170919, end: 20170920
  31. LANSOPRAZOLE [Concomitant]
     Active Substance: LANSOPRAZOLE
     Indication: Prophylaxis
     Dosage: 30 MG, QD
     Route: 048
     Dates: start: 20170728, end: 20170905
  32. MIDAZOLAM [Concomitant]
     Active Substance: MIDAZOLAM
     Indication: Palliative care
     Dosage: 2.5 MG, PRN
     Route: 058
     Dates: start: 20170918, end: 20170920
  33. MORPHINE SULFATE [Concomitant]
     Active Substance: MORPHINE SULFATE
     Indication: Palliative care
     Dosage: 2.5 MG, PRN
     Route: 065
     Dates: start: 20170918, end: 20170920

REACTIONS (18)
  - Rectal haemorrhage [Fatal]
  - Lethargy [Not Recovered/Not Resolved]
  - Nasopharyngitis [Recovered/Resolved]
  - Abnormal sensation in eye [Recovered/Resolved]
  - Migraine [Not Recovered/Not Resolved]
  - Dyschezia [Not Recovered/Not Resolved]
  - Vulvovaginal candidiasis [Recovered/Resolved]
  - Oropharyngeal pain [Recovered/Resolved]
  - Oral candidiasis [Recovered/Resolved]
  - Hypocalcaemia [Not Recovered/Not Resolved]
  - Insomnia [Recovered/Resolved]
  - Urinary tract infection [Not Recovered/Not Resolved]
  - Asthenia [Recovered/Resolved]
  - Neuropathy peripheral [Recovered/Resolved]
  - Nausea [Recovered/Resolved]
  - Conjunctivitis [Recovered/Resolved]
  - Depression [Not Recovered/Not Resolved]
  - Decreased appetite [Recovered/Resolved]

NARRATIVE: CASE EVENT DATE: 20151229
